FAERS Safety Report 6634040-9 (Version None)
Quarter: 2010Q1

REPORT INFORMATION
  Report Type: 
  Country: None (occurrence: None)
  Receive Date: 20100315
  Receipt Date: 20100309
  Transmission Date: 20100710
  Serious: Yes (Death)
  Sender: FDA-Public Use
  Company Number: PHHY2010BE10736

PATIENT
  Sex: Male

DRUGS (6)
  1. AFINITOR [Suspect]
     Dosage: 5 MG, QD
     Route: 048
     Dates: start: 20091021, end: 20100104
  2. PANTOMED [Concomitant]
     Dosage: 20
  3. PROPAMINE [Concomitant]
     Dosage: 24
  4. MEDROL [Concomitant]
     Dosage: 32
  5. SELOZOK [Concomitant]
     Dosage: 12
  6. LASIX [Concomitant]
     Dosage: 4

REACTIONS (1)
  - DEATH [None]
